FAERS Safety Report 23830981 (Version 1)
Quarter: 2024Q2

REPORT INFORMATION
  Report Type: Spontaneous
  Country: US (occurrence: None)
  Receive Date: 20240507
  Receipt Date: 20240507
  Transmission Date: 20240716
  Serious: Yes (Hospitalization)
  Sender: FDA-Public Use
  Company Number: None

PATIENT
  Age: 76 Year
  Sex: Female
  Weight: 100 kg

DRUGS (1)
  1. DABIGATRAN ETEXILATE [Suspect]
     Active Substance: DABIGATRAN ETEXILATE
     Dosage: FREQUENCY : TWICE A DAY;?
     Route: 048
     Dates: start: 20221031, end: 20221101

REACTIONS (1)
  - Headache [None]

NARRATIVE: CASE EVENT DATE: 20221102
